FAERS Safety Report 15763669 (Version 1)
Quarter: 2018Q4

REPORT INFORMATION
  Report Type: Report from Study
  Country: US (occurrence: US)
  Receive Date: 20181227
  Receipt Date: 20181227
  Transmission Date: 20190205
  Serious: Yes (Other)
  Sender: FDA-Public Use
  Company Number: US-ROCHE-2226804

PATIENT
  Age: 51 Year
  Sex: Female
  Weight: 57.66 kg

DRUGS (11)
  1. GABAPENTIN. [Concomitant]
     Active Substance: GABAPENTIN
  2. TIZANIDINE. [Concomitant]
     Active Substance: TIZANIDINE
  3. AMPYRA [Concomitant]
     Active Substance: DALFAMPRIDINE
  4. OMEGA (UNK INGREDIENTS) [Concomitant]
  5. OCREVUS [Suspect]
     Active Substance: OCRELIZUMAB
     Indication: RELAPSING-REMITTING MULTIPLE SCLEROSIS
     Route: 065
     Dates: start: 20180614, end: 20180628
  6. TIZANIDINE. [Concomitant]
     Active Substance: TIZANIDINE
  7. MONTELUKAST [Concomitant]
     Active Substance: MONTELUKAST SODIUM
  8. OCREVUS [Suspect]
     Active Substance: OCRELIZUMAB
     Route: 065
     Dates: end: 201812
  9. BIOTIN [Concomitant]
     Active Substance: BIOTIN
  10. PANTOPRAZOLE [Concomitant]
     Active Substance: PANTOPRAZOLE
  11. CLONIDINE. [Concomitant]
     Active Substance: CLONIDINE

REACTIONS (1)
  - Breast cancer [Unknown]

NARRATIVE: CASE EVENT DATE: 20181128
